FAERS Safety Report 9527558 (Version 1)
Quarter: 2013Q3

REPORT INFORMATION
  Report Type: Spontaneous
  Country: US (occurrence: US)
  Receive Date: 20130917
  Receipt Date: 20130917
  Transmission Date: 20140515
  Serious: No
  Sender: FDA-Public Use
  Company Number: US-B.I. PHARMACEUTICALS,INC./RIDGEFIELD-2013-BI-27881BP

PATIENT
  Age: 84 Year
  Sex: Female

DRUGS (8)
  1. CATAPRES TTS [Suspect]
     Indication: HYPERTENSION
     Dosage: 0.1 MG
     Route: 061
  2. LISINOPRIL/HCTZ [Concomitant]
     Route: 048
  3. METFORMIN [Concomitant]
     Indication: DIABETES MELLITUS
     Route: 048
  4. METAMUCIL [Concomitant]
     Route: 048
  5. TRIMETHOPRIM [Concomitant]
     Route: 048
  6. BENEDRYL [Concomitant]
     Route: 048
  7. ASPIRIN [Concomitant]
     Route: 048
  8. PROBIOTIC [Concomitant]
     Route: 048

REACTIONS (1)
  - Hypotension [Recovered/Resolved]
